FAERS Safety Report 10247983 (Version 2)
Quarter: 2015Q2

REPORT INFORMATION
  Report Type: Spontaneous
  Country: US (occurrence: US)
  Receive Date: 20140619
  Receipt Date: 20150409
  Transmission Date: 20150821
  Serious: Yes (Death, Other)
  Sender: FDA-Public Use
  Company Number: US-009507513-1406USA009638

PATIENT
  Sex: Male
  Weight: 104.31 kg

DRUGS (1)
  1. JANUVIA [Suspect]
     Active Substance: SITAGLIPTIN PHOSPHATE
     Indication: TYPE 2 DIABETES MELLITUS
     Dosage: 100 MG, QD
     Route: 048
     Dates: start: 20110712, end: 20111221

REACTIONS (15)
  - Blood glucose abnormal [Unknown]
  - Constipation [Unknown]
  - Hypertension [Unknown]
  - Gastrooesophageal reflux disease [Unknown]
  - Adenoidal disorder [Unknown]
  - Abdominal hernia [Unknown]
  - Metastases to liver [Unknown]
  - Tonsillar disorder [Unknown]
  - Diabetes mellitus inadequate control [Unknown]
  - Appendix disorder [Unknown]
  - Hypoglycaemia [Unknown]
  - Renal cyst [Unknown]
  - Pancreatic carcinoma [Fatal]
  - Arthralgia [Unknown]
  - Nephrolithiasis [Unknown]

NARRATIVE: CASE EVENT DATE: 20111125
